FAERS Safety Report 10591123 (Version 1)
Quarter: 2014Q4

REPORT INFORMATION
  Report Type: Spontaneous
  Country: US (occurrence: None)
  Receive Date: 20141112
  Receipt Date: 20141112
  Transmission Date: 20150529
  Serious: Yes (Other)
  Sender: FDA-Public Use
  Company Number: US-2013-11450

PATIENT
  Sex: Female

DRUGS (3)
  1. ORAL FLUIDS (BARIUM SULFATE) [Concomitant]
  2. DEXTROSE (GLUCOSE), LEVULOSE (FRUCTOSE), PHOSPHORIC ACID [Concomitant]
  3. SAMSCA [Suspect]
     Active Substance: TOLVAPTAN
     Indication: HYPONATRAEMIA
     Dosage: 15 MG MILLIGRAM(S), UNK?
     Dates: start: 20130731

REACTIONS (2)
  - Rapid correction of hyponatraemia [None]
  - Drug administration error [None]
